FAERS Safety Report 10370189 (Version 1)
Quarter: 2014Q3

REPORT INFORMATION
  Report Type: Spontaneous
  Country: US (occurrence: US)
  Receive Date: 20140808
  Receipt Date: 20140808
  Transmission Date: 20150326
  Serious: Yes (Other)
  Sender: FDA-Public Use
  Company Number: PHEH2014US015722

PATIENT
  Sex: Female

DRUGS (6)
  1. TOBI [Suspect]
     Active Substance: TOBRAMYCIN
     Dosage: UKN
  2. SINGULAIR [Concomitant]
     Active Substance: MONTELUKAST SODIUM
     Dosage: UKN
  3. TOBI [Suspect]
     Active Substance: TOBRAMYCIN
     Dosage: UKN
  4. VFEND [Concomitant]
     Active Substance: VORICONAZOLE
     Dosage: UKN
  5. QVAR [Concomitant]
     Active Substance: BECLOMETHASONE DIPROPIONATE
     Dosage: UKN
  6. ALLEGRA [Concomitant]
     Active Substance: FEXOFENADINE HYDROCHLORIDE
     Dosage: UKN

REACTIONS (1)
  - Pseudomonas infection [Unknown]
